FAERS Safety Report 5772986-4 (Version None)
Quarter: 2008Q2

REPORT INFORMATION
  Report Type: 
  Country: None (occurrence: None)
  Receive Date: 20080613
  Receipt Date: 20080603
  Transmission Date: 20081010
  Serious: Yes (Other)
  Sender: FDA-Public Use
  Company Number: US-PFIZER INC-2008047766

PATIENT
  Sex: Male
  Weight: 64.9 kg

DRUGS (5)
  1. CHANTIX [Suspect]
     Indication: SMOKING CESSATION THERAPY
     Dates: start: 20080427, end: 20080429
  2. POTASSIUM CHLORIDE [Concomitant]
  3. FOLIC ACID [Concomitant]
  4. DOXAZOSIN MESYLATE [Concomitant]
  5. HYDROCHLOROTHIAZIDE [Concomitant]

REACTIONS (1)
  - HEART RATE IRREGULAR [None]
